FAERS Safety Report 5371978-7 (Version None)
Quarter: 2007Q2

REPORT INFORMATION
  Report Type: 
  Country: None (occurrence: None)
  Receive Date: 20070619
  Receipt Date: 20070504
  Transmission Date: 20071010
  Serious: No
  Sender: FDA-Public Use
  Company Number: 2007US001211

PATIENT
  Age: 66 Year
  Sex: Female

DRUGS (7)
  1. VESICARE [Suspect]
     Indication: NOCTURIA
     Dosage: 10 MG  , 5 MG
  2. PLAVIX [Concomitant]
  3. TOPROL-XL [Concomitant]
  4. ASPIRIN [Concomitant]
  5. SYNTHROID [Concomitant]
  6. STOOL SOFTENER    (DOCUSATE SODIUM) [Concomitant]
  7. CRESTOR [Concomitant]

REACTIONS (1)
  - CONSTIPATION [None]
